FAERS Safety Report 12935971 (Version 1)
Quarter: 2016Q4

REPORT INFORMATION
  Report Type: Spontaneous
  Country: GB (occurrence: GB)
  Receive Date: 20161114
  Receipt Date: 20161114
  Transmission Date: 20170207
  Serious: Yes (Other)
  Sender: FDA-Public Use
  Company Number: GB-SUN PHARMACEUTICAL INDUSTRIES LTD-2016RR-127189

PATIENT
  Age: 40 Year
  Sex: Female

DRUGS (3)
  1. DEXAMETHASONE. [Suspect]
     Active Substance: DEXAMETHASONE
     Indication: LUNG ADENOCARCINOMA
     Dosage: UNK
     Route: 065
  2. CISPLATIN. [Suspect]
     Active Substance: CISPLATIN
     Indication: LUNG ADENOCARCINOMA
     Dosage: UNK
     Route: 065
     Dates: start: 20130101
  3. PEMETREXED [Suspect]
     Active Substance: PEMETREXED
     Indication: LUNG ADENOCARCINOMA
     Dosage: UNK (MAINTENANCE DOSE)
     Route: 065
     Dates: start: 20130101

REACTIONS (8)
  - Rash [Unknown]
  - Disease progression [Unknown]
  - Headache [Unknown]
  - Mobility decreased [Unknown]
  - Lung adenocarcinoma [Unknown]
  - Depressed mood [Unknown]
  - Weight increased [Unknown]
  - Tearfulness [Unknown]

NARRATIVE: CASE EVENT DATE: 20130101
